FAERS Safety Report 9331514 (Version 1)
Quarter: 2013Q2

REPORT INFORMATION
  Report Type: Spontaneous
  Country: US (occurrence: US)
  Receive Date: 20130605
  Receipt Date: 20130605
  Transmission Date: 20140414
  Serious: No
  Sender: FDA-Public Use
  Company Number: US-PFIZER INC-2013164968

PATIENT
  Age: 49 Year
  Sex: Female
  Weight: 65.8 kg

DRUGS (1)
  1. PREMARIN [Suspect]
     Dosage: 1 G, 1X/DAY
     Route: 067
     Dates: start: 20130523, end: 20130527

REACTIONS (3)
  - Migraine [Recovered/Resolved]
  - Fatigue [Not Recovered/Not Resolved]
  - Drug dose omission [Unknown]
